FAERS Safety Report 25013725 (Version 1)
Quarter: 2025Q1

REPORT INFORMATION
  Report Type: Spontaneous
  Country: US (occurrence: US)
  Receive Date: 20250226
  Receipt Date: 20250226
  Transmission Date: 20250408
  Serious: No
  Sender: UCB
  Company Number: US-UCBSA-2024019954

PATIENT
  Age: 81 Year
  Sex: Male

DRUGS (1)
  1. KEPPRA [Interacting]
     Active Substance: LEVETIRACETAM
     Indication: Product used for unknown indication

REACTIONS (9)
  - Dysstasia [Unknown]
  - Memory impairment [Unknown]
  - Swelling face [Unknown]
  - Drug interaction [Unknown]
  - Brain fog [Unknown]
  - Asthenia [Unknown]
  - Fatigue [Unknown]
  - Diarrhoea [Unknown]
  - Peripheral swelling [Unknown]
